FAERS Safety Report 4731723-2 (Version None)
Quarter: 2005Q3

REPORT INFORMATION
  Report Type: 
  Country: None (occurrence: None)
  Receive Date: 20050725
  Receipt Date: 20041019
  Transmission Date: 20060218
  Serious: Yes (Disabling)
  Sender: FDA-Public Use
  Company Number: WAES 0306USA00834

PATIENT
  Age: 58 Year
  Sex: Female
  Weight: 68.4932 kg

DRUGS (4)
  1. VIOXX [Suspect]
     Indication: ARTHRITIS
     Dosage: PO
     Route: 048
     Dates: start: 20010718
  2. ACIPHEX [Concomitant]
  3. REGLAN [Concomitant]
  4. ROBAXIN [Concomitant]

REACTIONS (23)
  - ABDOMINAL DISTENSION [None]
  - ABDOMINAL TENDERNESS [None]
  - ADVERSE EVENT [None]
  - ANGINA PECTORIS [None]
  - ARTHRALGIA [None]
  - CHEST PAIN [None]
  - DRUG HYPERSENSITIVITY [None]
  - EPIDERMAL NAEVUS [None]
  - GASTRIC ULCER [None]
  - GASTRITIS [None]
  - GASTROOESOPHAGEAL REFLUX DISEASE [None]
  - HEADACHE [None]
  - HYPERTENSION [None]
  - IRRITABLE BOWEL SYNDROME [None]
  - LIVER DISORDER [None]
  - LOSS OF CONSCIOUSNESS [None]
  - NECK PAIN [None]
  - OEDEMA PERIPHERAL [None]
  - PAIN IN EXTREMITY [None]
  - PERIPHERAL ISCHAEMIA [None]
  - POPLITEAL STENOSIS [None]
  - SPINAL DISORDER [None]
  - STRESS [None]
